FAERS Safety Report 19110473 (Version 1)
Quarter: 2021Q2

REPORT INFORMATION
  Report Type: Spontaneous
  Country: US (occurrence: US)
  Receive Date: 20210409
  Receipt Date: 20210409
  Transmission Date: 20210717
  Serious: No
  Sender: FDA-Public Use
  Company Number: US-SA-2021SA113660

PATIENT
  Sex: Female

DRUGS (1)
  1. DUPIXENT [Suspect]
     Active Substance: DUPILUMAB
     Indication: DERMATITIS
     Dosage: 300 MG, QOW
     Route: 058
     Dates: start: 20181030

REACTIONS (5)
  - Product use in unapproved indication [Unknown]
  - Lacrimation increased [Unknown]
  - Dermatitis [Unknown]
  - Product dose omission issue [Unknown]
  - Eye pruritus [Unknown]
